FAERS Safety Report 24385059 (Version 9)
Quarter: 2025Q2

REPORT INFORMATION
  Report Type: Report from Study
  Country: US (occurrence: US)
  Receive Date: 20241001
  Receipt Date: 20250623
  Transmission Date: 20250717
  Serious: Yes (Hospitalization, Other)
  Sender: TAKEDA
  Company Number: US-TAKEDA-US201911041

PATIENT
  Age: 70 Year
  Sex: Female
  Weight: 87.075 kg

DRUGS (36)
  1. .ALPHA.1-PROTEINASE INHIBITOR HUMAN [Suspect]
     Active Substance: .ALPHA.1-PROTEINASE INHIBITOR HUMAN
     Indication: Alpha-1 antitrypsin deficiency
     Dosage: 60 MILLIGRAM/KILOGRAM, 1/WEEK
  2. .ALPHA.1-PROTEINASE INHIBITOR HUMAN [Suspect]
     Active Substance: .ALPHA.1-PROTEINASE INHIBITOR HUMAN
     Dosage: UNK, 1/WEEK
     Dates: end: 20190308
  3. .ALPHA.1-PROTEINASE INHIBITOR HUMAN [Suspect]
     Active Substance: .ALPHA.1-PROTEINASE INHIBITOR HUMAN
     Dosage: 60 MILLIGRAM/KILOGRAM, 1/WEEK
  4. EPINEPHRINE [Concomitant]
     Active Substance: EPINEPHRINE
  5. ALBUTEROL\IPRATROPIUM [Concomitant]
     Active Substance: ALBUTEROL\IPRATROPIUM
  6. GEMTESA [Concomitant]
     Active Substance: VIBEGRON
  7. ROFLUMILAST [Concomitant]
     Active Substance: ROFLUMILAST
  8. FLUOXETINE HYDROCHLORIDE [Concomitant]
     Active Substance: FLUOXETINE HYDROCHLORIDE
  9. VITAMIN B [Concomitant]
     Active Substance: VITAMIN B
  10. SODIUM CHLORIDE [Concomitant]
     Active Substance: SODIUM CHLORIDE
  11. TRELEGY ELLIPTA [Concomitant]
     Active Substance: FLUTICASONE FUROATE\UMECLIDINIUM BROMIDE\VILANTEROL TRIFENATATE
  12. PANTOPRAZOLE SODIUM [Concomitant]
     Active Substance: PANTOPRAZOLE SODIUM
  13. CRANBERRY [Concomitant]
     Active Substance: CRANBERRY
  14. ALBUTEROL SULFATE [Concomitant]
     Active Substance: ALBUTEROL SULFATE
  15. TRIAMCINOLONE [Concomitant]
     Active Substance: TRIAMCINOLONE
  16. ESTRADIOL [Concomitant]
     Active Substance: ESTRADIOL
  17. ACYCLOVIR [Concomitant]
     Active Substance: ACYCLOVIR
  18. PREDNISONE [Concomitant]
     Active Substance: PREDNISONE
  19. OXYGEN [Concomitant]
     Active Substance: OXYGEN
  20. VENLAFAXINE HCL [Concomitant]
     Active Substance: VENLAFAXINE HYDROCHLORIDE
  21. NYSTATIN [Concomitant]
     Active Substance: NYSTATIN
  22. CALCIUM [Concomitant]
     Active Substance: CALCIUM
  23. DIPHENHYDRAMINE HYDROCHLORIDE [Concomitant]
     Active Substance: DIPHENHYDRAMINE HYDROCHLORIDE
  24. Lmx [Concomitant]
  25. MECLIZINE HYDROCHLORIDE [Concomitant]
     Active Substance: MECLIZINE HYDROCHLORIDE
  26. AZELASTINE [Concomitant]
     Active Substance: AZELASTINE
  27. MONTELUKAST [Concomitant]
     Active Substance: MONTELUKAST
  28. LISINOPRIL [Concomitant]
     Active Substance: LISINOPRIL
  29. DIPHENHYDRAMINE [Concomitant]
     Active Substance: DIPHENHYDRAMINE
  30. HEPARIN [Concomitant]
     Active Substance: HEPARIN SODIUM
  31. FLUTICASONE [Concomitant]
     Active Substance: FLUTICASONE
  32. FEXOFENADINE [Concomitant]
     Active Substance: FEXOFENADINE HYDROCHLORIDE
  33. UMECLIDINIUM BROMIDE\VILANTEROL TRIFENATATE [Concomitant]
     Active Substance: UMECLIDINIUM BROMIDE\VILANTEROL TRIFENATATE
  34. LEVOFLOXACIN [Concomitant]
     Active Substance: LEVOFLOXACIN
     Indication: Pneumonia
  35. VITAMIN B COMPLEX [Concomitant]
     Active Substance: CYANOCOBALAMIN\DEXPANTHENOL\NIACINAMIDE\PYRIDOXINE HYDROCHLORIDE\RIBOFLAVIN 5^-PHOSPHATE SODIUM\THIA
  36. ALBUTEROL SULFATE [Concomitant]
     Active Substance: ALBUTEROL SULFATE

REACTIONS (17)
  - Pneumonia [Unknown]
  - COVID-19 pneumonia [Unknown]
  - Fall [Unknown]
  - Pelvic fracture [Unknown]
  - Rib fracture [Unknown]
  - Pain [Unknown]
  - Foot deformity [Unknown]
  - Oxygen saturation abnormal [Unknown]
  - Illness [Unknown]
  - Contusion [Unknown]
  - Gait disturbance [Unknown]
  - Head injury [Unknown]
  - Product dose omission issue [Unknown]
  - Device issue [Unknown]
  - Myalgia [Not Recovered/Not Resolved]
  - Dizziness [Unknown]
  - Headache [Not Recovered/Not Resolved]

NARRATIVE: CASE EVENT DATE: 20181101
